FAERS Safety Report 9674551 (Version 1)
Quarter: 2013Q4

REPORT INFORMATION
  Report Type: Spontaneous
  Country: US (occurrence: US)
  Receive Date: 20131107
  Receipt Date: 20131107
  Transmission Date: 20140711
  Serious: No
  Sender: FDA-Public Use
  Company Number: US-009507513-1311USA001744

PATIENT
  Sex: Female

DRUGS (3)
  1. COZAAR [Suspect]
     Indication: HYPERTENSION
     Dosage: 50 MG, QD
     Route: 048
     Dates: start: 2013
  2. METFORMIN [Concomitant]
     Dosage: UNKNOWN
  3. PRADAXA [Concomitant]
     Dosage: UNKNOWN

REACTIONS (1)
  - Myalgia [Not Recovered/Not Resolved]
